FAERS Safety Report 5262561-2 (Version None)
Quarter: 2007Q1

REPORT INFORMATION
  Report Type: 
  Country: None (occurrence: None)
  Receive Date: 20070312
  Receipt Date: 20070226
  Transmission Date: 20070707
  Serious: Yes (Other)
  Sender: FDA-Public Use
  Company Number: AU-BAYER-200711227GDS

PATIENT
  Age: 55 Year
  Sex: Male

DRUGS (3)
  1. CIPROFLOXACIN [Suspect]
     Indication: OSTEOMYELITIS CHRONIC
     Route: 048
  2. OPIOIDS [Concomitant]
     Indication: PAIN
  3. CEPHALEXIN [Concomitant]
     Indication: URINARY TRACT INFECTION
     Route: 065

REACTIONS (3)
  - COLOUR BLINDNESS [None]
  - OPTIC NEUROPATHY [None]
  - VISUAL ACUITY REDUCED [None]
